FAERS Safety Report 17096758 (Version 1)
Quarter: 2019Q4

REPORT INFORMATION
  Report Type: Spontaneous
  Country: IT (occurrence: IT)
  Receive Date: 20191202
  Receipt Date: 20191202
  Transmission Date: 20200122
  Serious: Yes (Other)
  Sender: FDA-Public Use
  Company Number: IT-AUROBINDO-AUR-APL-2019-075780

PATIENT
  Age: 81 Year
  Sex: Female

DRUGS (1)
  1. AMIODARONE TABLETS [Suspect]
     Active Substance: AMIODARONE
     Dosage: 200 MILLIGRAM, ONCE A DAY
     Route: 048

REACTIONS (3)
  - Hyperthyroidism [Recovering/Resolving]
  - Hyperhidrosis [Recovering/Resolving]
  - Weight decreased [Recovering/Resolving]

NARRATIVE: CASE EVENT DATE: 20190717
